FAERS Safety Report 14541807 (Version 2)
Quarter: 2018Q1

REPORT INFORMATION
  Report Type: Spontaneous
  Country: DE (occurrence: DE)
  Receive Date: 20180216
  Receipt Date: 20180227
  Transmission Date: 20180509
  Serious: Yes (Hospitalization, Other)
  Sender: FDA-Public Use
  Company Number: DE-SA-2018SA035470

PATIENT
  Age: 75 Year
  Sex: Female
  Weight: 57 kg

DRUGS (6)
  1. DOCETAXEL. [Suspect]
     Active Substance: DOCETAXEL
     Indication: BREAST CANCER METASTATIC
     Dosage: DOSE:1 UNIT(S)
     Route: 042
     Dates: start: 20170330, end: 20170330
  2. DOCETAXEL. [Suspect]
     Active Substance: DOCETAXEL
     Indication: BREAST CANCER METASTATIC
     Dosage: DOSE:1 UNIT(S)
     Route: 042
     Dates: start: 20171102, end: 20171102
  3. PERTUZUMAB. [Suspect]
     Active Substance: PERTUZUMAB
     Indication: BREAST CANCER METASTATIC
     Dosage: DOSE:1 UNIT(S)
     Route: 042
     Dates: start: 20170330, end: 20170330
  4. TRASTUZUMAB. [Suspect]
     Active Substance: TRASTUZUMAB
     Indication: BREAST CANCER METASTATIC
     Dosage: DOSE:1 UNIT(S)
     Route: 042
     Dates: start: 20170330, end: 20170330
  5. PERTUZUMAB. [Suspect]
     Active Substance: PERTUZUMAB
     Indication: BREAST CANCER METASTATIC
     Dosage: DOSE:1 UNIT(S)
     Route: 042
     Dates: start: 20171102, end: 20171102
  6. TRASTUZUMAB. [Suspect]
     Active Substance: TRASTUZUMAB
     Indication: BREAST CANCER METASTATIC
     Dosage: DOSE:1 UNIT(S)
     Route: 042
     Dates: start: 20171102, end: 20171102

REACTIONS (5)
  - Connective tissue disorder [Unknown]
  - Pneumonitis [Recovered/Resolved]
  - Urinary retention [Recovered/Resolved]
  - Musculoskeletal disorder [Unknown]
  - Febrile neutropenia [Recovered/Resolved]

NARRATIVE: CASE EVENT DATE: 20171110
